FAERS Safety Report 8890070 (Version 1)
Quarter: 2012Q4

REPORT INFORMATION
  Report Type: 
  Country: CA (occurrence: CA)
  Receive Date: 20121106
  Receipt Date: 20121106
  Transmission Date: 20130627
  Serious: Yes (Hospitalization)
  Sender: FDA-Public Use
  Company Number: PHMT2007CA00464

PATIENT
  Sex: Female

DRUGS (1)
  1. SANDOSTATIN LAR [Suspect]
     Indication: GASTROINTESTINAL ANGIODYSPLASIA
     Dosage: 20 mg, QMO
     Dates: start: 20061214, end: 20061214

REACTIONS (7)
  - Syncope [Unknown]
  - Haemorrhage [Unknown]
  - Gastric mucosal lesion [Unknown]
  - Haemoglobin decreased [Unknown]
  - Fatigue [Unknown]
  - Nausea [Unknown]
  - Vomiting [Unknown]
